FAERS Safety Report 5873631-X (Version None)
Quarter: 2008Q3

REPORT INFORMATION
  Report Type: 
  Country: None (occurrence: None)
  Receive Date: 20080908
  Receipt Date: 20080828
  Transmission Date: 20090109
  Serious: Yes (Other)
  Sender: FDA-Public Use
  Company Number: A0739239A

PATIENT
  Age: 91 Year
  Sex: Female

DRUGS (7)
  1. ADVAIR DISKUS 100/50 [Suspect]
     Indication: EMPHYSEMA
     Dosage: 1PUFF TWICE PER DAY
     Route: 055
  2. ATENOLOL [Concomitant]
  3. FUROSEMIDE [Concomitant]
  4. ISOSORBIDE [Concomitant]
  5. K-DUR [Concomitant]
  6. UNSPECIFIED INHALER [Concomitant]
  7. OXYGEN [Concomitant]

REACTIONS (2)
  - BLINDNESS [None]
  - VISUAL ACUITY REDUCED [None]
